FAERS Safety Report 24354476 (Version 1)
Quarter: 2024Q3

REPORT INFORMATION
  Report Type: Spontaneous
  Country: CN (occurrence: CN)
  Receive Date: 20240923
  Receipt Date: 20240923
  Transmission Date: 20241017
  Serious: Yes (Other)
  Sender: BAXTER
  Company Number: None

PATIENT
  Age: 70 Year
  Sex: Female
  Weight: 47 kg

DRUGS (5)
  1. CYCLOPHOSPHAMIDE [Suspect]
     Active Substance: CYCLOPHOSPHAMIDE
     Indication: Breast cancer female
     Dosage: 0.85 G, ONE TIME IN ONE DAY, DILUTED WITH 0.9% NACL 100ML
     Route: 041
     Dates: start: 20240508, end: 20240508
  2. SODIUM CHLORIDE [Suspect]
     Active Substance: SODIUM CHLORIDE
     Indication: Medication dilution
     Dosage: 100 ML, 0.9% INJECTION DILUTED WITH CYCLOPHOSPHAMIDE
     Route: 041
     Dates: start: 20240508, end: 20240508
  3. SODIUM CHLORIDE [Suspect]
     Active Substance: SODIUM CHLORIDE
     Dosage: 100 ML, 0.9% INJECTION DILUTED WITH EPIRUBICIN
     Route: 041
     Dates: start: 20240508, end: 20240508
  4. EPIRUBICIN [Suspect]
     Active Substance: EPIRUBICIN
     Indication: Breast cancer female
     Dosage: 130 MG, ONE TIME IN ONE DAY, USED TO DILUTE 0.9% NACL 100ML
     Route: 041
     Dates: start: 20240508, end: 20240508
  5. AROMASIN [Suspect]
     Active Substance: EXEMESTANE
     Indication: Breast cancer female
     Dosage: 1 TABLET, QD, AFTER THE CHEMOTHERAPY ENDED; ENDOCRINE THERAPY
     Route: 048
     Dates: start: 20240509, end: 20240903

REACTIONS (1)
  - Hepatic function abnormal [Recovering/Resolving]

NARRATIVE: CASE EVENT DATE: 20240621
